FAERS Safety Report 7415248-1 (Version None)
Quarter: 2011Q2

REPORT INFORMATION
  Report Type: 
  Country: None (occurrence: None)
  Receive Date: 20110414
  Receipt Date: 20110412
  Transmission Date: 20111010
  Serious: Yes (Death)
  Sender: FDA-Public Use
  Company Number: PHHY2011US30635

PATIENT
  Sex: Female

DRUGS (2)
  1. EXJADE [Suspect]
     Indication: THALASSAEMIA SICKLE CELL
     Dosage: 1250 MG, QD
     Route: 048
  2. EXJADE [Suspect]
     Indication: SICKLE CELL ANAEMIA WITH CRISIS

REACTIONS (1)
  - DEATH [None]
